FAERS Safety Report 19478928 (Version 2)
Quarter: 2021Q4

REPORT INFORMATION
  Report Type: Spontaneous
  Country: US (occurrence: US)
  Receive Date: 20210630
  Receipt Date: 20211108
  Transmission Date: 20220303
  Serious: No
  Sender: FDA-Public Use
  Company Number: US-ELI_LILLY_AND_COMPANY-US202106014624

PATIENT
  Sex: Female

DRUGS (2)
  1. EMGALITY [Suspect]
     Active Substance: GALCANEZUMAB-GNLM
     Indication: Product used for unknown indication
     Dosage: 240 MG, SINGLE(LOADING DOSE)
     Route: 058
     Dates: start: 20210513
  2. EMGALITY [Suspect]
     Active Substance: GALCANEZUMAB-GNLM
     Dosage: 120 MG, UNKNOWN
     Route: 058

REACTIONS (12)
  - Injection site pain [Unknown]
  - Sinus tachycardia [Unknown]
  - Muscle spasms [Unknown]
  - Arthralgia [Unknown]
  - Weight increased [Unknown]
  - Alopecia [Unknown]
  - Insomnia [Unknown]
  - Myalgia [Unknown]
  - Muscular weakness [Not Recovered/Not Resolved]
  - Anxiety [Unknown]
  - Cough [Unknown]
  - Migraine [Not Recovered/Not Resolved]
